FAERS Safety Report 4602262-4 (Version None)
Quarter: 2005Q2

REPORT INFORMATION
  Report Type: 
  Country: None (occurrence: None)
  Receive Date: 20050215
  Receipt Date: 20041203
  Transmission Date: 20051028
  Serious: Yes (Disabling)
  Sender: FDA-Public Use
  Company Number: 380841

PATIENT
  Age: 49 Year
  Sex: Female
  Weight: 94.8 kg

DRUGS (5)
  1. PEGASYS [Suspect]
     Indication: HEPATITIS C
     Dosage: SUBCUTANEOUS
     Route: 058
     Dates: start: 20040517
  2. COPEGUS [Suspect]
     Indication: HEPATITIS C
     Dosage: 3 PER 1 DAY ORAL
     Route: 048
     Dates: start: 20040517
  3. TOPAMAX [Concomitant]
  4. LIPITOR [Concomitant]
  5. SYNTHROID [Concomitant]

REACTIONS (4)
  - DYSPNOEA [None]
  - FATIGUE [None]
  - HEADACHE [None]
  - LUNG DISORDER [None]
